FAERS Safety Report 4332161-7 (Version None)
Quarter: 2004Q1

REPORT INFORMATION
  Report Type: 
  Country: None (occurrence: None)
  Receive Date: 20040329
  Receipt Date: 20040315
  Transmission Date: 20041129
  Serious: Yes (Other)
  Sender: FDA-Public Use
  Company Number: 2003121802

PATIENT
  Age: 55 Year
  Sex: Female
  Weight: 77.1115 kg

DRUGS (1)
  1. ZOLOFT [Suspect]
     Indication: DEPRESSION
     Dosage: DAILY, ORAL
     Route: 048
     Dates: start: 19920101

REACTIONS (14)
  - ANGER [None]
  - ATTENTION DEFICIT/HYPERACTIVITY DISORDER [None]
  - DIZZINESS [None]
  - ECONOMIC PROBLEM [None]
  - FEAR [None]
  - FIBROMYALGIA [None]
  - GALLBLADDER OPERATION [None]
  - HOMICIDAL IDEATION [None]
  - IMPAIRED WORK ABILITY [None]
  - IRRITABILITY [None]
  - LEGAL PROBLEM [None]
  - MANIA [None]
  - SUICIDAL IDEATION [None]
  - TIC [None]
